FAERS Safety Report 23717592 (Version 1)
Quarter: 2024Q2

REPORT INFORMATION
  Report Type: Spontaneous
  Country: FR (occurrence: FR)
  Receive Date: 20240408
  Receipt Date: 20240408
  Transmission Date: 20240716
  Serious: Yes (Hospitalization)
  Sender: FDA-Public Use
  Company Number: None

PATIENT
  Age: 4 Month
  Sex: Female
  Weight: 6.1199 kg

DRUGS (16)
  1. CLONAZEPAM [Suspect]
     Active Substance: CLONAZEPAM
     Indication: Neuralgia
     Dosage: DAILY DOSE: 3 DROP
     Route: 048
     Dates: start: 20240205, end: 20240207
  2. LEVETIRACETAM [Suspect]
     Active Substance: LEVETIRACETAM
     Indication: Infantile spasms
     Dosage: DAILY DOSE: 200 MILLIGRAM
     Route: 048
     Dates: start: 20240122
  3. TOPIRAMATE [Suspect]
     Active Substance: TOPIRAMATE
     Indication: Infantile spasms
     Dosage: BID?DAILY DOSE: 30 MILLIGRAM
     Route: 048
     Dates: start: 20231117
  4. SABRIL [Suspect]
     Active Substance: VIGABATRIN
     Indication: Pain in extremity
     Route: 048
     Dates: start: 20240115, end: 20240115
  5. SABRIL [Suspect]
     Active Substance: VIGABATRIN
     Indication: Infantile spasms
     Route: 048
     Dates: start: 20240115, end: 20240115
  6. SABRIL [Suspect]
     Active Substance: VIGABATRIN
     Indication: Pain in extremity
     Dosage: DAILY DOSE: 400 MILLIGRAM
     Route: 048
     Dates: start: 20240116, end: 20240205
  7. SABRIL [Suspect]
     Active Substance: VIGABATRIN
     Indication: Infantile spasms
     Dosage: DAILY DOSE: 400 MILLIGRAM
     Route: 048
     Dates: start: 20240116, end: 20240205
  8. SABRIL [Suspect]
     Active Substance: VIGABATRIN
     Indication: Pain in extremity
     Dosage: 100 MG/KG/DAY
     Route: 048
     Dates: start: 20240123
  9. SABRIL [Suspect]
     Active Substance: VIGABATRIN
     Indication: Infantile spasms
     Dosage: 100 MG/KG/DAY
     Route: 048
     Dates: start: 20240123
  10. SABRIL [Suspect]
     Active Substance: VIGABATRIN
     Indication: Pain in extremity
     Dosage: DAILY DOSE: 460 MILLIGRAM
     Route: 048
     Dates: start: 20240206, end: 20240207
  11. SABRIL [Suspect]
     Active Substance: VIGABATRIN
     Indication: Infantile spasms
     Dosage: DAILY DOSE: 460 MILLIGRAM
     Route: 048
     Dates: start: 20240206, end: 20240207
  12. SABRIL [Suspect]
     Active Substance: VIGABATRIN
     Indication: Pain in extremity
     Dosage: 80 MG/KG/DAY
     Route: 048
  13. SABRIL [Suspect]
     Active Substance: VIGABATRIN
     Indication: Infantile spasms
     Dosage: 80 MG/KG/DAY
     Route: 048
  14. TEGRETOL [Suspect]
     Active Substance: CARBAMAZEPINE
     Dates: start: 20231119
  15. PREDNISOLONE [Concomitant]
     Active Substance: PREDNISOLONE
     Dosage: DAILY DOSE: 40 MILLIGRAM
     Route: 048
     Dates: start: 20240115
  16. Zyma D [Concomitant]
     Dosage: DAILY DOSE: 2 DROP

REACTIONS (6)
  - Drug interaction [Recovered/Resolved]
  - Altered state of consciousness [Recovered/Resolved]
  - Respiratory distress [Recovered/Resolved]
  - Bronchiolitis [Unknown]
  - Hypotonia [Unknown]
  - Somnolence [Unknown]

NARRATIVE: CASE EVENT DATE: 20240207
